FAERS Safety Report 18973703 (Version 4)
Quarter: 2022Q1

REPORT INFORMATION
  Report Type: Report from Study
  Country: FR (occurrence: FR)
  Receive Date: 20210305
  Receipt Date: 20220107
  Transmission Date: 20220423
  Serious: Yes (Hospitalization, Other)
  Sender: FDA-Public Use
  Company Number: FR-BRISTOL-MYERS SQUIBB COMPANY-BMS-2021-008577

PATIENT
  Age: 57 Year
  Sex: Male
  Weight: 73 kg

DRUGS (21)
  1. NIVOLUMAB [Suspect]
     Active Substance: NIVOLUMAB
     Indication: Tonsil cancer
     Dosage: 240 MILLIGRAM, LEAD IN PHASE
     Route: 065
     Dates: start: 20201016
  2. NIVOLUMAB [Suspect]
     Active Substance: NIVOLUMAB
     Dosage: 360 MILLIGRAM, CYCLE 1
     Route: 065
     Dates: start: 20201029
  3. NIVOLUMAB [Suspect]
     Active Substance: NIVOLUMAB
     Dosage: 360 MILLIGRAM, CYCLE 2
     Route: 065
     Dates: start: 20201119
  4. NIVOLUMAB [Suspect]
     Active Substance: NIVOLUMAB
     Dosage: 360 MILLIGRAM, CYCLE 3
     Route: 065
     Dates: start: 20201210
  5. NIVOLUMAB [Suspect]
     Active Substance: NIVOLUMAB
     Dosage: 360 MILLIGRAM, MAINTENANCE
     Route: 065
     Dates: start: 20210115
  6. CISPLATIN [Suspect]
     Active Substance: CISPLATIN
     Indication: Tonsil cancer
     Dosage: 180 MILLIGRAM, CYCLE 1
     Route: 065
     Dates: start: 20201029
  7. CISPLATIN [Suspect]
     Active Substance: CISPLATIN
     Dosage: 180 MILLIGRAM, CYCLE 2
     Route: 065
     Dates: start: 20201119
  8. CISPLATIN [Suspect]
     Active Substance: CISPLATIN
     Dosage: 180 MILLIGRAM, CYCLE 3
     Route: 065
     Dates: start: 20201210
  9. BISOPROLOL [Concomitant]
     Active Substance: BISOPROLOL
     Indication: Product used for unknown indication
     Dosage: 5 MILLIGRAM (2-0-0)-TABLETS IN THE MORNING
     Route: 065
  10. KARDEGIC [Concomitant]
     Active Substance: ASPIRIN DL-LYSINE
     Indication: Product used for unknown indication
     Dosage: 75 MILLIGRAM, (0-1-0), ONE TABLET IN THE MORNING
     Route: 065
  11. POTASSIUM CHLORIDE [Concomitant]
     Active Substance: POTASSIUM CHLORIDE
     Indication: Product used for unknown indication
     Dosage: 1 DOSAGE FORM (2-2-2), 2 SPOONS IN THE MORNING- NOON-EVENING
     Route: 065
  12. FOLIC ACID [Concomitant]
     Active Substance: FOLIC ACID
     Indication: Product used for unknown indication
     Dosage: 5 MILLIGRAM (0-1-0), ONE TABLET IN THE MORNING
     Route: 065
  13. BISOPROLOL FUMARATE\HYDROCHLOROTHIAZIDE [Concomitant]
     Active Substance: BISOPROLOL FUMARATE\HYDROCHLOROTHIAZIDE
     Indication: Product used for unknown indication
     Dosage: 10 MG / 6.25 MG, FILM-COATED TABLET, 1 DOSAGE FORM (1-0-0), ONE TABLET IN THE MORNING
     Route: 065
  14. ESOMEPRAZOLE [Concomitant]
     Active Substance: ESOMEPRAZOLE
     Indication: Product used for unknown indication
     Dosage: 40 MILLIGRAM (0-0-1),ONE TABLET IN THE EVENING
     Route: 065
  15. DIETARY SUPPLEMENT [Concomitant]
     Active Substance: DIETARY SUPPLEMENT
     Indication: Product used for unknown indication
     Dosage: UNK
     Route: 065
  16. ACETAMINOPHEN [Concomitant]
     Active Substance: ACETAMINOPHEN
     Indication: Product used for unknown indication
     Dosage: UNK UNK, PRN
     Route: 065
  17. TRAMADOL HYDROCHLORIDE [Concomitant]
     Active Substance: TRAMADOL HYDROCHLORIDE
     Indication: Product used for unknown indication
     Dosage: UNK UNK, PRN
     Route: 065
  18. MALTODEXTRIN [Concomitant]
     Active Substance: MALTODEXTRIN
     Indication: Product used for unknown indication
     Dosage: UNK
     Route: 065
  19. FISH OIL [Concomitant]
     Active Substance: FISH OIL
     Indication: Product used for unknown indication
     Dosage: UNK
     Route: 065
  20. MINERALS\VITAMINS [Concomitant]
     Active Substance: MINERALS\VITAMINS
     Indication: Product used for unknown indication
     Dosage: UNK
     Route: 065
  21. FRESUBIN MEGAREAL [Concomitant]
     Indication: Product used for unknown indication
     Dosage: ENTERAL NUTRITION 1000ML 1.4 KCAL/ML IN THE NIGHT
     Route: 065

REACTIONS (7)
  - Escherichia sepsis [Recovered/Resolved]
  - Device related sepsis [Recovered/Resolved]
  - Acute pulmonary oedema [Recovered/Resolved]
  - Respiratory distress [Recovered/Resolved]
  - COVID-19 [Recovering/Resolving]
  - Pneumonia aspiration [Recovering/Resolving]
  - Cardiac failure [Recovering/Resolving]

NARRATIVE: CASE EVENT DATE: 20210121
